FAERS Safety Report 15784197 (Version 1)
Quarter: 2019Q1

REPORT INFORMATION
  Report Type: Other
  Country: BR (occurrence: BR)
  Receive Date: 20190103
  Receipt Date: 20190103
  Transmission Date: 20190417
  Serious: Yes (Other)
  Sender: FDA-Public Use
  Company Number: BR-DEXPHARM-20180996

PATIENT
  Age: 68 Year
  Sex: Female

DRUGS (1)
  1. CHLORHEXIDINE [Suspect]
     Active Substance: CHLORHEXIDINE
     Route: 013

REACTIONS (3)
  - Gangrene [Unknown]
  - Musculoskeletal pain [Unknown]
  - Accidental exposure to product [Unknown]
